FAERS Safety Report 9001533 (Version 2)
Quarter: 2013Q2

REPORT INFORMATION
  Report Type: Spontaneous
  Country: US (occurrence: US)
  Receive Date: 20130107
  Receipt Date: 20130403
  Transmission Date: 20140414
  Serious: Yes (Hospitalization)
  Sender: FDA-Public Use
  Company Number: US-BAYER-2013-000566

PATIENT
  Age: 31 Year
  Sex: Female

DRUGS (8)
  1. BEYAZ [Suspect]
     Dosage: UNK
     Dates: start: 201110, end: 201202
  2. SYNTHROID [Concomitant]
  3. Z-PAK [Concomitant]
  4. CHERATUSSIN AC [Concomitant]
     Dosage: ONE TO TWO TEASPOONFUL EVERY 6 HOURS
     Route: 048
  5. R-TANNA [CHLORPHENAMINE TANNATE,PHENYLEPHRINE TANNATE] [Concomitant]
     Dosage: ONE TO TWO TABLETS, BID
     Route: 048
  6. LIVALO [Concomitant]
     Dosage: 4 MG, QD
     Route: 048
  7. PRILOSEC [Concomitant]
  8. ENOXAPARIN [Concomitant]

REACTIONS (5)
  - Pulmonary embolism [Recovered/Resolved]
  - Injury [Recovered/Resolved]
  - Pain [Recovered/Resolved]
  - Emotional distress [None]
  - Pain [None]
